FAERS Safety Report 11512489 (Version 2)
Quarter: 2015Q4

REPORT INFORMATION
  Report Type: Report from Study
  Country: CA (occurrence: CA)
  Receive Date: 20150916
  Receipt Date: 20151230
  Transmission Date: 20160304
  Serious: Yes (Other)
  Sender: FDA-Public Use
  Company Number: PHHY2015CA108887

PATIENT
  Sex: Female
  Weight: 70 kg

DRUGS (3)
  1. AMLODIPINE [Concomitant]
     Active Substance: AMLODIPINE BESYLATE
     Indication: BLOOD PRESSURE ABNORMAL
     Route: 065
  2. SANDOSTATIN [Suspect]
     Active Substance: OCTREOTIDE ACETATE
     Indication: METASTATIC CARCINOID TUMOUR
     Route: 058
     Dates: start: 20100225, end: 201410
  3. SANDOSTATIN LAR DEPOT [Suspect]
     Active Substance: OCTREOTIDE ACETATE
     Indication: METASTATIC CARCINOID TUMOUR
     Dosage: 30 MG, QMO
     Route: 030
     Dates: start: 201004

REACTIONS (9)
  - Metastases to liver [Unknown]
  - Hot flush [Unknown]
  - Blood pressure systolic increased [Unknown]
  - Palpitations [Unknown]
  - Neoplasm malignant [Unknown]
  - Second primary malignancy [Unknown]
  - Body temperature decreased [Unknown]
  - Sepsis [Unknown]
  - Liver abscess [Unknown]

NARRATIVE: CASE EVENT DATE: 2011
